FAERS Safety Report 14875910 (Version 5)
Quarter: 2018Q4

REPORT INFORMATION
  Report Type: Spontaneous
  Country: HU (occurrence: HU)
  Receive Date: 20180510
  Receipt Date: 20181019
  Transmission Date: 20190204
  Serious: Yes (Hospitalization, Other)
  Sender: FDA-Public Use
  Company Number: HU-SA-2018SA129301

PATIENT
  Age: 69 Year
  Sex: Female

DRUGS (18)
  1. NITROMINT [Concomitant]
     Active Substance: NITROGLYCERIN
     Indication: HYPERTENSION
     Dosage: PRN (2 PUFFS/0.5 HOURS)
  2. RILMENIDINE [Concomitant]
     Active Substance: RILMENIDINE
     Indication: HYPERTENSION
     Dosage: 2 DF, 2 TABLET AT NOON
  3. ALPRAZOLAM. [Suspect]
     Active Substance: ALPRAZOLAM
     Indication: HYPERTENSION
     Dosage: UNK UNK, QD
     Route: 065
  4. HYDROCHLOROTHIAZIDE;LOSARTAN POTASSIUM [Suspect]
     Active Substance: HYDROCHLOROTHIAZIDE\LOSARTAN POTASSIUM
     Indication: HYPERTENSION
     Dosage: UNK
     Dates: start: 2015
  5. HYDROCHLOROTHIAZIDE;LOSARTAN POTASSIUM [Suspect]
     Active Substance: HYDROCHLOROTHIAZIDE\LOSARTAN POTASSIUM
     Indication: VERTIGO
  6. RAMIPRIL. [Suspect]
     Active Substance: RAMIPRIL
     Dosage: UNK, BID
  7. INDAPAMIDE. [Suspect]
     Active Substance: INDAPAMIDE
     Indication: HYPERTENSION
     Dosage: UNK UNK,UNK
  8. INDAPAMIDE. [Suspect]
     Active Substance: INDAPAMIDE
     Dosage: UNK
  9. ALPRAZOLAM. [Suspect]
     Active Substance: ALPRAZOLAM
     Indication: SALVAGE THERAPY
     Dosage: TID, PRN
  10. CAPTOPRIL. [Concomitant]
     Active Substance: CAPTOPRIL
     Indication: HYPERTENSION
     Dosage: UNK UNK,PRN
  11. DOXAZOSIN MESILATE [Suspect]
     Active Substance: DOXAZOSIN MESYLATE
     Indication: HYPERTENSION
     Dosage: UNK, QD
  12. CAPTOPRIL. [Concomitant]
     Active Substance: CAPTOPRIL
     Indication: SALVAGE THERAPY
  13. ACETYLSALICYLIC ACID [Suspect]
     Active Substance: ASPIRIN
     Indication: HYPERTENSION
     Dosage: UNK UNK,UNK
  14. RAMIPRIL. [Suspect]
     Active Substance: RAMIPRIL
     Indication: HYPERTENSION
     Dosage: 10 MG, QD
  15. AMLODIPINE [Suspect]
     Active Substance: AMLODIPINE BESYLATE
     Dosage: UNK
  16. AMLODIPINE BESILATE;RAMIPRIL [Suspect]
     Active Substance: AMLODIPINE\RAMIPRIL
     Indication: HYPERTENSION
     Dosage: 10 MG, QD
  17. BETAHISTINE [Concomitant]
     Active Substance: BETAHISTINE
     Indication: HYPERTENSION
     Dosage: UNK UNK, QD
  18. AMLODIPINE [Suspect]
     Active Substance: AMLODIPINE BESYLATE
     Indication: HYPERTENSION
     Dosage: 1 DF, IN THE MORNING

REACTIONS (12)
  - Hypotension [Recovered/Resolved]
  - Drug ineffective [Unknown]
  - Heart valve incompetence [Unknown]
  - Left ventricular hypertrophy [Unknown]
  - Angiopathy [Unknown]
  - Blood pressure fluctuation [Recovered/Resolved]
  - Oedema peripheral [Recovered/Resolved]
  - Condition aggravated [Recovered/Resolved]
  - Renal impairment [Unknown]
  - Overweight [Unknown]
  - Hyperlipidaemia [Unknown]
  - Hypertension [Recovered/Resolved]
